FAERS Safety Report 12125236 (Version 2)
Quarter: 2016Q2

REPORT INFORMATION
  Report Type: Report from Study
  Country: US (occurrence: US)
  Receive Date: 20160229
  Receipt Date: 20160412
  Transmission Date: 20160815
  Serious: Yes (Hospitalization)
  Sender: FDA-Public Use
  Company Number: US-JNJFOC-20160221150

PATIENT
  Sex: Male
  Weight: 161.48 kg

DRUGS (3)
  1. METFORMIN [Concomitant]
     Active Substance: METFORMIN HYDROCHLORIDE
     Route: 065
  2. INVOKANA [Suspect]
     Active Substance: CANAGLIFLOZIN
     Indication: TYPE 2 DIABETES MELLITUS
     Route: 048
     Dates: start: 2014
  3. CELEBREX [Concomitant]
     Active Substance: CELECOXIB
     Route: 065

REACTIONS (8)
  - Swelling [Unknown]
  - Tooth disorder [Recovered/Resolved]
  - Pain [Unknown]
  - Diarrhoea [Not Recovered/Not Resolved]
  - Infection [Recovered/Resolved]
  - Blood glucose increased [Recovered/Resolved]
  - Knee arthroplasty [Unknown]
  - Weight decreased [Unknown]

NARRATIVE: CASE EVENT DATE: 2014
